FAERS Safety Report 22536663 (Version 1)
Quarter: 2023Q2

REPORT INFORMATION
  Report Type: Report from Study
  Country: US (occurrence: US)
  Receive Date: 20230608
  Receipt Date: 20230608
  Transmission Date: 20230722
  Serious: Yes (Other)
  Sender: FDA-Public Use
  Company Number: US-SUN PHARMACEUTICAL INDUSTRIES LTD-2023R1-393400

PATIENT
  Age: 67 Year
  Sex: Female

DRUGS (2)
  1. CYCLOSPORINE [Suspect]
     Active Substance: CYCLOSPORINE
     Indication: Graft versus host disease in eye
     Dosage: MULTIPLE TIMES A DAY
     Route: 047
     Dates: start: 2021
  2. LOTEPREDNOL [Suspect]
     Active Substance: LOTEPREDNOL
     Indication: Graft versus host disease in eye
     Dosage: MULTIPLE TIMES A DAY
     Route: 065
     Dates: start: 2021

REACTIONS (1)
  - Therapy non-responder [Unknown]
